FAERS Safety Report 4963205-7 (Version None)
Quarter: 2006Q2

REPORT INFORMATION
  Report Type: 
  Country: None (occurrence: None)
  Receive Date: 20060405
  Receipt Date: 20060329
  Transmission Date: 20061013
  Serious: Yes (Death, Life-Threatening)
  Sender: FDA-Public Use
  Company Number: IN-AVENTIS-200611920EU

PATIENT

DRUGS (7)
  1. CLEXANE [Suspect]
     Indication: CORONARY ANGIOPLASTY
     Dates: start: 20060313, end: 20060315
  2. CLEXANE [Suspect]
     Indication: PROPHYLAXIS
     Dates: start: 20060313, end: 20060315
  3. ASPIRIN [Concomitant]
     Indication: CORONARY ARTERY DISEASE
     Route: 048
     Dates: start: 20051201
  4. CLOPIDOGREL [Concomitant]
     Indication: CORONARY ARTERY DISEASE
     Route: 048
     Dates: start: 20051201
  5. AMLODIPINE [Concomitant]
     Indication: CORONARY ARTERY DISEASE
     Route: 048
     Dates: start: 20051201
  6. ATORVASTATIN CALCIUM [Concomitant]
     Indication: CORONARY ARTERY DISEASE
     Route: 048
     Dates: start: 20051201
  7. BETA BLOCKING AGENTS [Concomitant]
     Indication: CORONARY ARTERY DISEASE
     Route: 048
     Dates: start: 20051201

REACTIONS (1)
  - CORONARY ARTERY THROMBOSIS [None]
